FAERS Safety Report 7787869-8 (Version None)
Quarter: 2011Q3

REPORT INFORMATION
  Report Type: 
  Country: None (occurrence: None)
  Receive Date: 20110930
  Receipt Date: 20110926
  Transmission Date: 20111222
  Serious: No
  Sender: FDA-Public Use
  Company Number: US-BIOGENIDEC-2011BI027408

PATIENT
  Sex: Female

DRUGS (5)
  1. TYSABRI [Suspect]
     Indication: MULTIPLE SCLEROSIS
     Route: 042
     Dates: start: 20110616
  2. DIAZEPAM [Concomitant]
     Indication: MUSCLE SPASMS
  3. BACLOFEN [Concomitant]
     Indication: MUSCLE SPASMS
  4. AVONEX [Concomitant]
     Route: 030
     Dates: start: 20000609, end: 20070516
  5. AVONEX [Concomitant]
     Route: 030

REACTIONS (12)
  - DEHYDRATION [None]
  - DRY MOUTH [None]
  - HYPOAESTHESIA ORAL [None]
  - DIARRHOEA [None]
  - HEADACHE [None]
  - NECK PAIN [None]
  - DIZZINESS [None]
  - URINARY TRACT INFECTION [None]
  - MUSCULOSKELETAL STIFFNESS [None]
  - GASTRIC DISORDER [None]
  - PAIN [None]
  - FATIGUE [None]
